FAERS Safety Report 25113478 (Version 2)
Quarter: 2025Q2

REPORT INFORMATION
  Report Type: Spontaneous
  Country: CN (occurrence: CN)
  Receive Date: 20250324
  Receipt Date: 20250528
  Transmission Date: 20250716
  Serious: Yes (Other)
  Sender: OTSUKA
  Company Number: CN-MMM-Otsuka-25YC9QTB

PATIENT
  Age: 38 Year
  Sex: Female
  Weight: 51 kg

DRUGS (3)
  1. ABILIFY [Suspect]
     Active Substance: ARIPIPRAZOLE
     Indication: Mental disorder
     Dosage: 1 DF, QD (1 GRANULES)
     Route: 048
     Dates: start: 20241223, end: 20250319
  2. CHLORPROMAZINE HYDROCHLORIDE [Suspect]
     Active Substance: CHLORPROMAZINE HYDROCHLORIDE
     Indication: Mental disorder
     Dosage: 3 DF, BID (3 GRANULES)
     Route: 048
     Dates: start: 20250116, end: 20250319
  3. METOPROLOL TARTRATE [Suspect]
     Active Substance: METOPROLOL TARTRATE
     Indication: Tachycardia
     Dosage: 0.5 DF, BID (0.5 GRANULES)
     Route: 048
     Dates: start: 20250211, end: 20250319

REACTIONS (1)
  - Drug-induced liver injury [Recovering/Resolving]

NARRATIVE: CASE EVENT DATE: 20250224
